FAERS Safety Report 8722701 (Version 2)
Quarter: 2015Q2

REPORT INFORMATION
  Report Type: Report from Study
  Country: US (occurrence: US)
  Receive Date: 20120814
  Receipt Date: 20150623
  Transmission Date: 20150821
  Serious: Yes (Hospitalization)
  Sender: FDA-Public Use
  Company Number: US-ROCHE-1099821

PATIENT
  Age: 56 Year
  Sex: Female

DRUGS (18)
  1. HEPARIN [Concomitant]
     Active Substance: HEPARIN SODIUM
  2. TENORMIN [Concomitant]
     Active Substance: ATENOLOL
     Route: 065
  3. PREMARIN [Concomitant]
     Active Substance: ESTROGENS, CONJUGATED
     Route: 065
  4. ZANTAC [Concomitant]
     Active Substance: RANITIDINE HYDROCHLORIDE
     Route: 048
  5. ASPIRIN. [Concomitant]
     Active Substance: ASPIRIN
     Route: 065
  6. ISORDIL [Concomitant]
     Active Substance: ISOSORBIDE DINITRATE
     Route: 065
  7. ATENOLOL. [Concomitant]
     Active Substance: ATENOLOL
     Route: 065
  8. XANAX [Concomitant]
     Active Substance: ALPRAZOLAM
     Route: 065
  9. CARDIZEM [Concomitant]
     Active Substance: DILTIAZEM HYDROCHLORIDE
     Route: 065
  10. NITRO-BID [Concomitant]
     Active Substance: NITROGLYCERIN
     Route: 065
  11. NITROGLYCERIN. [Concomitant]
     Active Substance: NITROGLYCERIN
     Route: 060
  12. PERSANTINE [Concomitant]
     Active Substance: DIPYRIDAMOLE
     Route: 048
  13. CARDIZEM [Concomitant]
     Active Substance: DILTIAZEM HYDROCHLORIDE
     Route: 065
  14. DSS [Concomitant]
     Active Substance: DOCUSATE SODIUM
     Route: 065
  15. MORPHINE SULPHATE DRIP [Concomitant]
     Route: 042
  16. MORPHINE SULPHATE DRIP [Concomitant]
     Route: 042
  17. ACTIVASE [Suspect]
     Active Substance: ALTEPLASE
     Indication: MYOCARDIAL INFARCTION
     Route: 042
  18. LIDOCAINE. [Concomitant]
     Active Substance: LIDOCAINE

REACTIONS (1)
  - Chest discomfort [Unknown]
